FAERS Safety Report 5454352-4 (Version None)
Quarter: 2007Q3

REPORT INFORMATION
  Report Type: 
  Country: None (occurrence: None)
  Receive Date: 20070917
  Receipt Date: 20060801
  Transmission Date: 20080115
  Serious: No
  Sender: FDA-Public Use
  Company Number: US-ASTRAZENECA-2006UW11652

PATIENT
  Age: 38 Year
  Sex: Male
  Weight: 90.9 kg

DRUGS (8)
  1. SEROQUEL [Suspect]
     Indication: BIPOLAR I DISORDER
     Route: 048
     Dates: start: 20060601
  2. SEROQUEL [Suspect]
     Indication: BORDERLINE PERSONALITY DISORDER
     Route: 048
     Dates: start: 20060601
  3. SEROQUEL [Suspect]
     Indication: PANIC ATTACK
     Route: 048
     Dates: start: 20060601
  4. SEROQUEL [Suspect]
     Route: 048
     Dates: start: 20060601
  5. SEROQUEL [Suspect]
     Route: 048
     Dates: start: 20060601
  6. SEROQUEL [Suspect]
     Route: 048
     Dates: start: 20060601
  7. CITALOPRAM [Concomitant]
     Indication: DEPRESSED MOOD
     Route: 048
     Dates: start: 20060627, end: 20060726
  8. LORAZEPAM [Concomitant]
     Indication: ANXIETY
     Route: 048
     Dates: start: 20060627

REACTIONS (7)
  - DRY MOUTH [None]
  - DYSGEUSIA [None]
  - FATIGUE [None]
  - HYPERSOMNIA [None]
  - MUSCLE TWITCHING [None]
  - MUSCULOSKELETAL STIFFNESS [None]
  - RESTLESS LEGS SYNDROME [None]
